FAERS Safety Report 6841489-8 (Version None)
Quarter: 2010Q3

REPORT INFORMATION
  Report Type: 
  Country: None (occurrence: None)
  Receive Date: 20100714
  Receipt Date: 20070703
  Transmission Date: 20110219
  Serious: No
  Sender: FDA-Public Use
  Company Number: US-PFIZER INC-2007056328

PATIENT
  Sex: Female
  Weight: 62.7 kg

DRUGS (9)
  1. CHANTIX [Suspect]
     Indication: SMOKING CESSATION THERAPY
     Route: 048
     Dates: start: 20070620, end: 20070601
  2. HYDROCHLOROTHIAZIDE [Concomitant]
     Indication: HYPERTENSION
     Route: 048
  3. LIPITOR [Concomitant]
     Route: 048
  4. POTASSIUM CHLORIDE [Concomitant]
     Route: 048
  5. NORVASC [Concomitant]
     Indication: HYPERTENSION
     Route: 048
  6. MAGNESIUM [Concomitant]
     Route: 048
  7. LUTEIN [Concomitant]
     Route: 048
  8. ACETYLSALICYLIC ACID [Concomitant]
     Route: 048
  9. FISH OIL [Concomitant]
     Route: 048

REACTIONS (2)
  - FATIGUE [None]
  - HYPERSOMNIA [None]
